FAERS Safety Report 18489670 (Version 3)
Quarter: 2025Q1

REPORT INFORMATION
  Report Type: Spontaneous
  Country: US (occurrence: US)
  Receive Date: 20201111
  Receipt Date: 20250113
  Transmission Date: 20250409
  Serious: Yes (Other)
  Sender: NOVO NORDISK
  Company Number: US-NOVOPROD-764165

PATIENT
  Sex: Female

DRUGS (1)
  1. NOVOLIN N [Suspect]
     Active Substance: INSULIN HUMAN
     Indication: Product used for unknown indication
     Route: 058
     Dates: start: 20201019

REACTIONS (2)
  - Intestinal haemorrhage [Not Recovered/Not Resolved]
  - Brain fog [Unknown]

NARRATIVE: CASE EVENT DATE: 20201001
